FAERS Safety Report 12985964 (Version 7)
Quarter: 2020Q1

REPORT INFORMATION
  Report Type: Report from Study
  Country: NL (occurrence: NL)
  Receive Date: 20161130
  Receipt Date: 20200113
  Transmission Date: 20200409
  Serious: Yes (Hospitalization, Other)
  Sender: FDA-Public Use
  Company Number: NL-AMGEN-NLDSL2016167822

PATIENT
  Age: 74 Year
  Sex: Female

DRUGS (23)
  1. HYPROMELLOSE [Concomitant]
     Active Substance: HYPROMELLOSES
     Dosage: 3.2 MILLIGRAM PER MILLILITRE (FL 10ML), AS NECESSARY (WHEN NECESSARY)
  2. ESOMEPRAZOL [ESOMEPRAZOLE] [Concomitant]
     Active Substance: ESOMEPRAZOLE
     Dosage: 20 MILLIGRAM, QD (1D1C)
  3. FUROSEMIDE. [Concomitant]
     Active Substance: FUROSEMIDE
     Dosage: 20 MILLIGRAM, QD
  4. FYTOMENADION [Concomitant]
     Dosage: 10 MILLIGRAM PER MILLILITRE, Q2WK (2W1ML)
  5. MOMETASON [Concomitant]
     Active Substance: MOMETASONE FUROATE
     Dosage: 1 MILLIGRAM PER GRAM, QD (1D)
  6. XGEVA [Suspect]
     Active Substance: DENOSUMAB
     Dosage: UNK
     Route: 058
  7. FENTANYL. [Concomitant]
     Active Substance: FENTANYL
     Dosage: 200 MICROGRAM
     Route: 060
  8. SPIRONOLACTON [Concomitant]
     Active Substance: SPIRONOLACTONE
     Dosage: 25 MILLIGRAM, QD (1D1T)
  9. CALCIUM CARBONATE W/COLECALCIFEROL [Concomitant]
     Active Substance: CALCIUM CARBONATE\CHOLECALCIFEROL
     Dosage: 1.25G/800IE (500MG CA), QD
  10. XGEVA [Suspect]
     Active Substance: DENOSUMAB
     Indication: PROPHYLAXIS
     Dosage: 120 MILLIGRAM (70MG/ML FLACON 1.7 ML), Q4WK
     Route: 058
  11. FULVESTRANT. [Concomitant]
     Active Substance: FULVESTRANT
     Dosage: 250MG=5ML ,50 MILLIGRAM PER MILLILITRE (WWSP 250MG=5ML), QMO
  12. PALBOCICLIB [Concomitant]
     Active Substance: PALBOCICLIB
     Dosage: 125 MILLIGRAM, QD
  13. CLONIDINE. [Concomitant]
     Active Substance: CLONIDINE
     Dosage: 0.025 MILLIGRAM, BID (2D1T)
  14. MACROGOL [Concomitant]
     Active Substance: POLYETHYLENE GLYCOLS
     Dosage: UNK UNK, QD
  15. XGEVA [Suspect]
     Active Substance: DENOSUMAB
     Dosage: UNK
     Route: 058
  16. CARBOMER [Concomitant]
     Active Substance: CARBOMER
     Dosage: 2 MILLIGRAM PER GRAM (CARBOMEER 980) TUBE, QD
  17. FENTANYL. [Concomitant]
     Active Substance: FENTANYL
     Dosage: 12UG/HR, 1X3D1PL,PLASTER 12UG/HR (SANDOZ), 1X3D1PL, TABLET 200UG,
  18. BETAMETHASON [BETAMETHASONE] [Concomitant]
     Active Substance: BETAMETHASONE
     Dosage: 0.5 MILLIGRAM PER GRAM, QD
  19. XGEVA [Suspect]
     Active Substance: DENOSUMAB
     Dosage: UNK
     Route: 058
  20. AMITRIPTYLINE [Concomitant]
     Active Substance: AMITRIPTYLINE
     Dosage: 25 MILLIGRAM (28.3 MILLIGRAM AMITRIPT. HCL), QD
  21. KETOCONAZOL [Concomitant]
     Active Substance: KETOCONAZOLE
     Dosage: 20 MILLIGRAM PER GRAM, 2D
  22. XGEVA [Suspect]
     Active Substance: DENOSUMAB
     Dosage: UNK
     Route: 058
  23. SODIUM CHLORIDE. [Concomitant]
     Active Substance: SODIUM CHLORIDE
     Dosage: 9MG/ML(0,9%) AMP 10ML

REACTIONS (6)
  - Intervertebral disc protrusion [Unknown]
  - Peripheral swelling [Recovered/Resolved]
  - Metastases to liver [Not Recovered/Not Resolved]
  - Ascites [Unknown]
  - Thrombosis [Recovering/Resolving]
  - Rash erythematous [Unknown]

NARRATIVE: CASE EVENT DATE: 2016
